FAERS Safety Report 6919423-1 (Version None)
Quarter: 2010Q3

REPORT INFORMATION
  Report Type: 
  Country: None (occurrence: None)
  Receive Date: 20100811
  Receipt Date: 20100810
  Transmission Date: 20110219
  Serious: Yes (Other)
  Sender: FDA-Public Use
  Company Number: B0383236A

PATIENT
  Age: 36 Year
  Sex: Female

DRUGS (1)
  1. HEPTODIN [Suspect]
     Indication: ANTIVIRAL TREATMENT
     Dosage: 100MG PER DAY
     Route: 048
     Dates: start: 20020417

REACTIONS (16)
  - ASTHENIA [None]
  - BLOOD DISORDER [None]
  - BODY TEMPERATURE INCREASED [None]
  - BONE MARROW FAILURE [None]
  - CHILLS [None]
  - DECREASED APPETITE [None]
  - FEELING COLD [None]
  - LEUKOPENIA [None]
  - NAUSEA [None]
  - NEUTROPENIA [None]
  - PAIN IN EXTREMITY [None]
  - PHARYNGEAL ERYTHEMA [None]
  - PLATELET COUNT DECREASED [None]
  - PYREXIA [None]
  - RED BLOOD CELL COUNT DECREASED [None]
  - TONSILLAR HYPERTROPHY [None]
